FAERS Safety Report 9224530 (Version 2)
Quarter: 2013Q2

REPORT INFORMATION
  Report Type: Report from Study
  Country: JP (occurrence: JP)
  Receive Date: 20130411
  Receipt Date: 20130419
  Transmission Date: 20140414
  Serious: Yes (Hospitalization)
  Sender: FDA-Public Use
  Company Number: JP-JNJFOC-20130404506

PATIENT
  Age: 63 Year
  Sex: Female

DRUGS (8)
  1. TRAMCET [Suspect]
     Indication: PAIN
     Dosage: 4 PER DAY
     Route: 048
     Dates: start: 20121129, end: 20121212
  2. TRAMCET [Suspect]
     Indication: PAIN
     Dosage: 4 PER DAY
     Route: 048
     Dates: start: 20121121, end: 20121128
  3. TRAMCET [Suspect]
     Indication: PAIN
     Dosage: 1 PER DAY
     Route: 048
     Dates: start: 20121114, end: 20121120
  4. CYMBALTA [Concomitant]
     Indication: PAIN
     Dosage: 1 PER DAY
     Route: 048
     Dates: end: 20121114
  5. LYRICA [Concomitant]
     Indication: PAIN
     Dosage: 1 PER DAY
     Route: 048
  6. CELECOX [Concomitant]
     Indication: PAIN
     Dosage: 1 PER DAY
     Route: 048
  7. LOXONIN [Concomitant]
     Indication: PAIN
     Dosage: 1 PER DAY
     Route: 062
  8. NOVAMIN [Concomitant]
     Indication: PROPHYLAXIS
     Dosage: 1 PER DAY
     Route: 048
     Dates: start: 20121114

REACTIONS (2)
  - Femoral neck fracture [Recovered/Resolved]
  - Fall [Unknown]
